FAERS Safety Report 7182016-8 (Version None)
Quarter: 2010Q4

REPORT INFORMATION
  Report Type: 
  Country: None (occurrence: None)
  Receive Date: 20101221
  Receipt Date: 20100505
  Transmission Date: 20110411
  Serious: No
  Sender: FDA-Public Use
  Company Number: US-AMGEN-KDL411171

PATIENT

DRUGS (2)
  1. ENBREL [Suspect]
     Indication: RHEUMATOID ARTHRITIS
  2. CELECOXIB [Concomitant]

REACTIONS (4)
  - IMMUNOSUPPRESSION [None]
  - MALAISE [None]
  - NASOPHARYNGITIS [None]
  - PAIN IN EXTREMITY [None]
